FAERS Safety Report 7167260-8 (Version None)
Quarter: 2010Q4

REPORT INFORMATION
  Report Type: 
  Country: None (occurrence: None)
  Receive Date: 20101213
  Receipt Date: 20101213
  Transmission Date: 20110411
  Serious: Yes (Hospitalization)
  Sender: FDA-Public Use
  Company Number: None

PATIENT
  Sex: Male
  Weight: 75.6 kg

DRUGS (3)
  1. BEVACIZUMAB LAST DOSE 11/17/2010 (1134 MG) [Suspect]
     Indication: PROSTATE CANCER
     Dosage: 15MG/KG Q 21 DAYS IV
     Route: 042
     Dates: start: 20101006, end: 20101117
  2. DOCETAXEL [Suspect]
     Indication: PROSTATE CANCER
     Dosage: 75MG/M2 Q 21 DAYS IV
     Route: 042
     Dates: start: 20101006, end: 20101117
  3. RAD 001 LAST DOSE 11/23/10 [Suspect]
     Indication: PROSTATE CANCER
     Dosage: 2.5 MG DAILY PO
     Route: 048
     Dates: start: 20101007, end: 20101123

REACTIONS (8)
  - ACUTE CORONARY SYNDROME [None]
  - CHEST PAIN [None]
  - ELECTROCARDIOGRAM T WAVE INVERSION [None]
  - FEBRILE NEUTROPENIA [None]
  - LOSS OF CONSCIOUSNESS [None]
  - NEUTROPHIL COUNT DECREASED [None]
  - SINUS TACHYCARDIA [None]
  - WHITE BLOOD CELL COUNT DECREASED [None]
